FAERS Safety Report 19449377 (Version 1)
Quarter: 2021Q2

REPORT INFORMATION
  Report Type: Spontaneous
  Country: US (occurrence: US)
  Receive Date: 20210622
  Receipt Date: 20210622
  Transmission Date: 20210717
  Serious: No
  Sender: FDA-Public Use
  Company Number: US-BAYER-2021-158910

PATIENT
  Age: 65 Year
  Sex: Male

DRUGS (1)
  1. LOTRIMIN ULTRA ANTIFUNGAL [Suspect]
     Active Substance: BUTENAFINE HYDROCHLORIDE
     Indication: ANTIFUNGAL PROPHYLAXIS
     Dosage: UNK, ABOUT A WEEK, A PEA SIZE
     Route: 061
     Dates: start: 20210528, end: 20210605

REACTIONS (2)
  - Drug ineffective for unapproved indication [Unknown]
  - Tinea cruris [Not Recovered/Not Resolved]
